FAERS Safety Report 17908088 (Version 1)
Quarter: 2020Q2

REPORT INFORMATION
  Report Type: Spontaneous
  Country: US (occurrence: US)
  Receive Date: 20200617
  Receipt Date: 20200617
  Transmission Date: 20200714
  Serious: Yes (Death, Life-Threatening, Hospitalization)
  Sender: FDA-Public Use
  Company Number: US-BAYER-2019-058495

PATIENT
  Age: 64 Year
  Sex: Male

DRUGS (4)
  1. BAYER LOW DOSE [Suspect]
     Active Substance: ASPIRIN
     Indication: CORONARY ARTERY DISEASE
     Dosage: 81 MG, QD
     Route: 048
  2. XARELTO [Suspect]
     Active Substance: RIVAROXABAN
     Indication: DEEP VEIN THROMBOSIS
     Dosage: 15 AND 20 MG
     Route: 048
     Dates: start: 201610, end: 201702
  3. XARELTO [Suspect]
     Active Substance: RIVAROXABAN
     Indication: PERIPHERAL ARTERIAL OCCLUSIVE DISEASE
  4. PLAVIX [Concomitant]
     Active Substance: CLOPIDOGREL BISULFATE
     Indication: CORONARY ARTERY DISEASE
     Dosage: 75 MG, QD
     Route: 048

REACTIONS (3)
  - Ischaemic cardiomyopathy [Fatal]
  - Gastrointestinal haemorrhage [Unknown]
  - Shock haemorrhagic [Unknown]

NARRATIVE: CASE EVENT DATE: 20170205
